FAERS Safety Report 7358548-6 (Version None)
Quarter: 2011Q1

REPORT INFORMATION
  Report Type: 
  Country: None (occurrence: None)
  Receive Date: 20110317
  Receipt Date: 20110310
  Transmission Date: 20110831
  Serious: Yes (Hospitalization)
  Sender: FDA-Public Use
  Company Number: AU-NOVOPROD-324714

PATIENT
  Sex: Male

DRUGS (2)
  1. NOVORAPID [Suspect]
     Indication: TYPE 2 DIABETES MELLITUS
     Dosage: 15 U, QD BEFORE EVENING MEAL
     Route: 058
  2. NOVOMIX 30 [Suspect]
     Indication: TYPE 2 DIABETES MELLITUS
     Dosage: 78 U, QD (25-28-25)
     Route: 058

REACTIONS (3)
  - DRUG HYPERSENSITIVITY [None]
  - PRURITUS [None]
  - LOSS OF CONSCIOUSNESS [None]
